FAERS Safety Report 6216732-9 (Version None)
Quarter: 2009Q2

REPORT INFORMATION
  Report Type: 
  Country: None (occurrence: None)
  Receive Date: 20090605
  Receipt Date: 20090527
  Transmission Date: 20091009
  Serious: Yes (Other)
  Sender: FDA-Public Use
  Company Number: PHHY2009JP21204

PATIENT
  Age: 75 Year
  Sex: Female

DRUGS (3)
  1. DIOVAN HCT [Suspect]
     Indication: HYPERTENSION
     Dosage: 1 DF, QD
     Route: 048
     Dates: start: 20090518, end: 20090521
  2. LIPITOR [Concomitant]
     Dosage: UNK
     Route: 048
  3. MOBIC [Concomitant]
     Dosage: UNK
     Route: 048

REACTIONS (2)
  - ARRHYTHMIA [None]
  - CHEST PAIN [None]
